FAERS Safety Report 6124215-X (Version None)
Quarter: 2009Q1

REPORT INFORMATION
  Report Type: 
  Country: None (occurrence: None)
  Receive Date: 20090319
  Receipt Date: 20090310
  Transmission Date: 20090719
  Serious: Yes (Other)
  Sender: FDA-Public Use
  Company Number: US-ELI_LILLY_AND_COMPANY-US200903002476

PATIENT
  Sex: Female

DRUGS (8)
  1. CYMBALTA [Suspect]
     Indication: FIBROMYALGIA
     Dosage: 60 MG, DAILY (1/D)
     Dates: start: 20060101
  2. MS CONTIN [Concomitant]
     Indication: PAIN
  3. MORPHINE [Concomitant]
     Indication: PAIN
  4. SYNTHROID [Concomitant]
  5. MOBIC [Concomitant]
  6. NORVASC [Concomitant]
  7. ESTRACE [Concomitant]
  8. ZANTAC [Concomitant]
     Dosage: 150 MG, UNK

REACTIONS (2)
  - HIP ARTHROPLASTY [None]
  - MYOCARDIAL INFARCTION [None]
